FAERS Safety Report 7197368-2 (Version None)
Quarter: 2010Q4

REPORT INFORMATION
  Report Type: 
  Country: None (occurrence: None)
  Receive Date: 20101213
  Receipt Date: 20101202
  Transmission Date: 20110411
  Serious: Yes (Disabling)
  Sender: FDA-Public Use
  Company Number: 2010SP003361

PATIENT
  Age: 19 Year
  Sex: Male

DRUGS (3)
  1. LUNESTA [Suspect]
     Indication: INSOMNIA
     Dosage: 3 MG;PRN;ORAL
     Route: 048
     Dates: start: 20100822, end: 20101001
  2. EFFEXOR XR [Concomitant]
  3. PREV MEDS [Concomitant]

REACTIONS (3)
  - AMNESIA [None]
  - IMPRISONMENT [None]
  - SOMNAMBULISM [None]
